FAERS Safety Report 9819627 (Version 1)
Quarter: 2014Q1

REPORT INFORMATION
  Report Type: Spontaneous
  Country: US (occurrence: None)
  Receive Date: 20140113
  Receipt Date: 20140113
  Transmission Date: 20141002
  Serious: Yes (Hospitalization, Other)
  Sender: FDA-Public Use
  Company Number: AEGR000243

PATIENT
  Sex: Female

DRUGS (3)
  1. JUXTAPID [Suspect]
     Indication: PANCREATITIS
     Dates: start: 19990607
  2. JUXTAPID [Suspect]
     Indication: PROPHYLAXIS
     Dates: start: 19990607
  3. FENOFIBRATE (FENOFIBRATE) (FENOFIBRATE) [Concomitant]

REACTIONS (8)
  - Pancreatitis relapsing [None]
  - Cholestasis [None]
  - Hepatic fibrosis [None]
  - Hepatic steatosis [None]
  - Hypotension [None]
  - Acute respiratory distress syndrome [None]
  - Splenomegaly [None]
  - Hepatitis [None]
